FAERS Safety Report 6338642-9 (Version None)
Quarter: 2009Q3

REPORT INFORMATION
  Report Type: 
  Country: None (occurrence: None)
  Receive Date: 20090903
  Receipt Date: 20090826
  Transmission Date: 20100115
  Serious: Yes (Hospitalization)
  Sender: FDA-Public Use
  Company Number: US-BIOGENIDEC-2009BI026887

PATIENT
  Age: 52 Year
  Sex: Female
  Weight: 90 kg

DRUGS (8)
  1. TYSABRI [Suspect]
     Indication: MULTIPLE SCLEROSIS
     Route: 042
     Dates: start: 20080108
  2. ADVAIR HFA [Concomitant]
     Indication: ASTHMA
  3. NEURONTIN [Concomitant]
     Indication: DRUG USE FOR UNKNOWN INDICATION
  4. BACLOFEN [Concomitant]
     Indication: DRUG USE FOR UNKNOWN INDICATION
  5. AUGMENTIN [Concomitant]
     Indication: DRUG USE FOR UNKNOWN INDICATION
  6. DEXAMETHASONE [Concomitant]
     Indication: DRUG USE FOR UNKNOWN INDICATION
  7. HYDROXYZINE [Concomitant]
     Indication: DRUG USE FOR UNKNOWN INDICATION
  8. CLOBETASOL PROPIONATE [Concomitant]
     Indication: DRUG USE FOR UNKNOWN INDICATION

REACTIONS (6)
  - DERMATITIS BULLOUS [None]
  - DRUG SPECIFIC ANTIBODY PRESENT [None]
  - EYE SWELLING [None]
  - HYPERSENSITIVITY [None]
  - SCAR [None]
  - URTICARIA [None]
